FAERS Safety Report 7542349-X (Version None)
Quarter: 2011Q2

REPORT INFORMATION
  Report Type: 
  Country: None (occurrence: None)
  Receive Date: 20110524
  Receipt Date: 20110316
  Transmission Date: 20111010
  Serious: No
  Sender: FDA-Public Use
  Company Number: 027059

PATIENT
  Sex: Female

DRUGS (2)
  1. CIMZIA [Suspect]
     Indication: CROHN'S DISEASE
     Dosage: SUBCUTANEOUS
     Dates: start: 20100921
  2. MESALAMINE [Suspect]
     Dosage: 4 CAPSULES FOR, 3 WKS

REACTIONS (3)
  - DYSPEPSIA [None]
  - DEPRESSION [None]
  - UNEVALUABLE EVENT [None]
